FAERS Safety Report 8791252 (Version 1)
Quarter: 2012Q4

REPORT INFORMATION
  Report Type: Spontaneous
  Country: None (occurrence: None)
  Receive Date: 20120911
  Receipt Date: 20120911
  Transmission Date: 20130627
  Serious: Yes (Other)
  Sender: FDA-Public Use
  Company Number: 2012033288

PATIENT
  Age: 15 Year

DRUGS (3)
  1. FACTOR VIII CONCENTRATE [Suspect]
  2. VANCOMYCIN [Concomitant]
  3. AMIKACIN [Suspect]

REACTIONS (5)
  - Factor VIII inhibition [None]
  - Condition aggravated [None]
  - Haemarthrosis [None]
  - Arthritis bacterial [None]
  - Anaemia [None]
